FAERS Safety Report 23027235 (Version 6)
Quarter: 2025Q4

REPORT INFORMATION
  Report Type: Spontaneous
  Country: US (occurrence: US)
  Receive Date: 20231004
  Receipt Date: 20251218
  Transmission Date: 20260117
  Serious: Yes (Death)
  Sender: PFIZER
  Company Number: US-PFIZER INC-PV202300154208

PATIENT
  Age: 60 Year
  Sex: Male

DRUGS (1)
  1. GENOTROPIN [Suspect]
     Active Substance: SOMATROPIN
     Dosage: 0.6 MG, DAILY

REACTIONS (8)
  - Death [Fatal]
  - Wrong technique in device usage process [Unknown]
  - Device breakage [Unknown]
  - Neoplasm [Unknown]
  - Injury [Unknown]
  - Metabolic disorder [Unknown]
  - Fatigue [Unknown]
  - Asthenia [Unknown]
